FAERS Safety Report 5475893-X (Version None)
Quarter: 2007Q4

REPORT INFORMATION
  Report Type: 
  Country: None (occurrence: None)
  Receive Date: 20071003
  Receipt Date: 20070928
  Transmission Date: 20080405
  Serious: Yes (Other)
  Sender: FDA-Public Use
  Company Number: BR-BRISTOL-MYERS SQUIBB COMPANY-13763933

PATIENT
  Age: 14 Year
  Sex: Male

DRUGS (4)
  1. ABATACEPT [Suspect]
     Indication: JUVENILE ARTHRITIS
     Route: 042
     Dates: start: 20050905, end: 20070426
  2. METHOTREXATE [Concomitant]
     Dates: start: 20050808
  3. NAPROXEN [Concomitant]
     Dates: start: 20041004
  4. ONDANSETRON [Concomitant]
     Dates: start: 20060710

REACTIONS (2)
  - MULTIPLE SCLEROSIS [None]
  - TEMPORAL LOBE EPILEPSY [None]
